FAERS Safety Report 9001418 (Version 1)
Quarter: 2013Q1

REPORT INFORMATION
  Report Type: Spontaneous
  Country: US (occurrence: US)
  Receive Date: 20130107
  Receipt Date: 20130107
  Transmission Date: 20140127
  Serious: Yes (Other)
  Sender: FDA-Public Use
  Company Number: US-009507513-1301USA001914

PATIENT
  Sex: 0

DRUGS (3)
  1. MONTELUKAST SODIUM [Suspect]
     Indication: ILL-DEFINED DISORDER
     Route: 048
  2. ANTIMICROBIAL (UNSPECIFIED) [Suspect]
     Route: 048
  3. CETIRIZINE HYDROCHLORIDE [Suspect]
     Route: 048

REACTIONS (2)
  - Convulsion [Unknown]
  - Potentiating drug interaction [Unknown]
